FAERS Safety Report 18673766 (Version 1)
Quarter: 2020Q4

REPORT INFORMATION
  Report Type: Spontaneous
  Country: AT (occurrence: AT)
  Receive Date: 20201228
  Receipt Date: 20201228
  Transmission Date: 20210114
  Serious: Yes (Other)
  Sender: FDA-Public Use
  Company Number: AT-ANIPHARMA-2020-AT-000031

PATIENT
  Sex: Female
  Weight: 68 kg

DRUGS (7)
  1. CANDESARTAN CILEXETIL. [Suspect]
     Active Substance: CANDESARTAN CILEXETIL
     Indication: PRODUCT USED FOR UNKNOWN INDICATION
     Dosage: 16 MG QD
     Route: 048
     Dates: start: 202006
  2. EBRANTIL [Suspect]
     Active Substance: URAPIDIL
     Dosage: UNKNOWN DOSE TWO TIMES A DAY
     Route: 065
     Dates: start: 2020
  3. ATORVALAN [Concomitant]
     Active Substance: ATORVASTATIN CALCIUM
     Dosage: UNKNOWN DOSE EVERY DAY
     Route: 065
     Dates: start: 201912
  4. THROMBO ASSACETYLSALICYLIC ACID [Concomitant]
     Dosage: 75 MG QD
     Route: 065
     Dates: start: 202002
  5. CANDESARTAN CILEXETIL AND HYDROCHLOROTHIAZIDE [Suspect]
     Active Substance: CANDESARTAN CILEXETIL\HYDROCHLOROTHIAZIDE
     Indication: PRODUCT USED FOR UNKNOWN INDICATION
     Dosage: 16/12.5 MILLIGRAM, UNKNOWN DOSE EVERY DAY
     Route: 048
     Dates: start: 2020
  6. MAGNESIUM [Concomitant]
     Active Substance: MAGNESIUM
     Dosage: UNKNOWN DOSE EVERY DAY
     Route: 065
     Dates: start: 201012
  7. HALCION [Concomitant]
     Active Substance: TRIAZOLAM
     Dosage: .25 MG UNK
     Route: 065
     Dates: start: 202002

REACTIONS (1)
  - Angina pectoris [Unknown]

NARRATIVE: CASE EVENT DATE: 202006
